FAERS Safety Report 7739455-3 (Version None)
Quarter: 2011Q3

REPORT INFORMATION
  Report Type: 
  Country: None (occurrence: None)
  Receive Date: 20110909
  Receipt Date: 20110826
  Transmission Date: 20111222
  Serious: Yes (Congenital Anomaly)
  Sender: FDA-Public Use
  Company Number: DE-MYLANLABS-2011S1017759

PATIENT

DRUGS (1)
  1. CITALOPRAM HYDROBROMIDE [Suspect]
     Dosage: 30 [MG/D ]/ GW 0-5: 30MG/D; SINCE GW 6: 20MG/D
     Route: 064
     Dates: start: 20100101

REACTIONS (2)
  - SPINA BIFIDA [None]
  - MATERNAL EXPOSURE DURING PREGNANCY [None]
